FAERS Safety Report 9460074 (Version 2)
Quarter: 2013Q3

REPORT INFORMATION
  Report Type: Spontaneous
  Country: US (occurrence: US)
  Receive Date: 20130815
  Receipt Date: 20130823
  Transmission Date: 20140515
  Serious: Yes (Death)
  Sender: FDA-Public Use
  Company Number: US-GILEAD-2013-0081206

PATIENT
  Sex: Male

DRUGS (9)
  1. CAYSTON [Suspect]
     Indication: CYSTIC FIBROSIS
     Dosage: 75 MG, UNK
     Route: 055
     Dates: start: 20100525, end: 201212
  2. CAYSTON [Suspect]
     Indication: PSEUDOMONAS INFECTION
  3. TOBI                               /00304201/ [Concomitant]
     Indication: PSEUDOMONAS INFECTION
     Dosage: 300 MG, UNK
     Route: 055
     Dates: end: 20130104
  4. CREON [Concomitant]
     Indication: PANCREATIC INSUFFICIENCY
     Dosage: 2 UNK, UNK
     Route: 048
     Dates: end: 20130107
  5. LANTUS [Concomitant]
     Indication: CYSTIC FIBROSIS RELATED DIABETES
     Dosage: 30 UNK, UNK
     Route: 058
     Dates: end: 20130107
  6. ZITROMAX [Concomitant]
     Indication: CYSTIC FIBROSIS
     Dosage: 500 MG, UNK
     Route: 048
     Dates: end: 20130107
  7. PULMOZYME [Concomitant]
     Indication: CYSTIC FIBROSIS
     Dosage: 25 MG, UNK
     Route: 055
     Dates: end: 20130107
  8. SALINE                             /00075401/ [Concomitant]
     Indication: CYSTIC FIBROSIS
     Dosage: 4 ML, UNK
     Route: 055
     Dates: end: 20130107
  9. NEXIUM                             /01479302/ [Concomitant]
     Indication: GASTROOESOPHAGEAL REFLUX DISEASE
     Dosage: 40 MG, UNK
     Route: 048
     Dates: end: 20130107

REACTIONS (2)
  - Respiratory failure [Fatal]
  - Cystic fibrosis [Fatal]
